FAERS Safety Report 9879899 (Version 1)
Quarter: 2014Q1

REPORT INFORMATION
  Report Type: Spontaneous
  Country: US (occurrence: US)
  Receive Date: 20140206
  Receipt Date: 20140206
  Transmission Date: 20141002
  Serious: Yes (Other)
  Sender: FDA-Public Use
  Company Number: US-ROCHE-1344481

PATIENT
  Sex: Male

DRUGS (5)
  1. XOLAIR [Suspect]
     Indication: ASTHMA
     Route: 065
  2. ADVAIR DISKUS [Concomitant]
     Dosage: 100-50 2 PUFFS
     Route: 065
  3. ADVAIR DISKUS [Concomitant]
     Dosage: 250-50 1 PUFF FOUR TIMES A DAY
     Route: 065
  4. ALBUTEROL [Concomitant]
     Dosage: AS NEEDED
     Route: 065
  5. ALBUTEROL [Concomitant]
     Dosage: AS NEEDED
     Route: 065

REACTIONS (3)
  - Rash [Unknown]
  - Asthma [Unknown]
  - Pulmonary function test decreased [Unknown]
